FAERS Safety Report 7879060-1 (Version None)
Quarter: 2011Q4

REPORT INFORMATION
  Report Type: 
  Country: None (occurrence: None)
  Receive Date: 20111101
  Receipt Date: 20111024
  Transmission Date: 20120403
  Serious: Yes (Other)
  Sender: FDA-Public Use
  Company Number: PHEH2011US07641

PATIENT

DRUGS (2)
  1. LITHIUM CITRATE [Concomitant]
  2. CLOZARIL [Suspect]

REACTIONS (6)
  - PNEUMONIA [None]
  - LUNG INFILTRATION [None]
  - LETHARGY [None]
  - CONFUSIONAL STATE [None]
  - VOMITING [None]
  - NEUROLEPTIC MALIGNANT SYNDROME [None]
